FAERS Safety Report 14043944 (Version 1)
Quarter: 2017Q4

REPORT INFORMATION
  Report Type: Report from Study
  Country: US (occurrence: US)
  Receive Date: 20171004
  Receipt Date: 20171004
  Transmission Date: 20180321
  Serious: No
  Sender: FDA-Public Use
  Company Number: US-AMGEN-USASL2016141386

PATIENT
  Age: 82 Year
  Sex: Female
  Weight: 59.8 kg

DRUGS (6)
  1. PROLIA [Suspect]
     Active Substance: DENOSUMAB
     Indication: BONE DISORDER
  2. PROLIA [Suspect]
     Active Substance: DENOSUMAB
     Indication: GASTROINTESTINAL HAEMORRHAGE
  3. PROLIA [Suspect]
     Active Substance: DENOSUMAB
     Indication: OSTEOPENIA
     Dosage: 1 ML, Q6MO
     Route: 058
     Dates: start: 20160711
  4. PROLIA [Suspect]
     Active Substance: DENOSUMAB
     Indication: DYSKINESIA OESOPHAGEAL
  5. PROLIA [Suspect]
     Active Substance: DENOSUMAB
     Indication: INJURY
  6. PROLIA [Suspect]
     Active Substance: DENOSUMAB
     Indication: GASTROOESOPHAGEAL REFLUX DISEASE

REACTIONS (2)
  - Off label use [Unknown]
  - Bone density abnormal [Unknown]
